FAERS Safety Report 8477897-1 (Version None)
Quarter: 2012Q2

REPORT INFORMATION
  Report Type: 
  Country: None (occurrence: None)
  Receive Date: 20120629
  Receipt Date: 20120622
  Transmission Date: 20120825
  Serious: Yes (Hospitalization)
  Sender: FDA-Public Use
  Company Number: US-BAYER-2012-047403

PATIENT
  Age: 24 Year
  Sex: Female
  Weight: 68.027 kg

DRUGS (7)
  1. DROSPIRENONE AND ETHINYL ESTRADIOL [Suspect]
     Indication: ACNE
  2. DROSPIRENONE AND ETHINYL ESTRADIOL [Suspect]
     Indication: CONTRACEPTION
     Dosage: UNK
     Dates: start: 20041001, end: 20101201
  3. PAXIL [Concomitant]
     Indication: ANXIETY
     Dosage: 20 MG, DAILY
     Dates: start: 20010101
  4. ACETAMINOPHEN [Concomitant]
     Indication: PAIN
     Dosage: UNK UNK, PRN
  5. YASMIN [Suspect]
     Indication: ACNE
  6. YASMIN [Suspect]
     Indication: CONTRACEPTION
     Dosage: UNK
     Dates: start: 20041001, end: 20101201
  7. PAROXETINE HCL [Concomitant]
     Dosage: 30 MG, UNK
     Dates: start: 20100903

REACTIONS (7)
  - INJURY [None]
  - ANHEDONIA [None]
  - FEAR [None]
  - PULMONARY EMBOLISM [None]
  - ANXIETY [None]
  - PAIN [None]
  - PANIC ATTACK [None]
